FAERS Safety Report 8322754-4 (Version None)
Quarter: 2012Q2

REPORT INFORMATION
  Report Type: 
  Country: None (occurrence: None)
  Receive Date: 20120426
  Receipt Date: 20120418
  Transmission Date: 20120825
  Serious: Yes (Life-Threatening, Hospitalization)
  Sender: FDA-Public Use
  Company Number: WAES 1204USA03232

PATIENT
  Age: 66 Year
  Sex: Female
  Weight: 56.6996 kg

DRUGS (4)
  1. TEMODAR [Suspect]
     Indication: GLIOBLASTOMA MULTIFORME
     Dosage: 75 MG/M[2]/DAILY/PO
     Route: 048
     Dates: start: 20120312, end: 20120409
  2. CAP VORINOSTAT UNK [Suspect]
     Indication: GLIOBLASTOMA MULTIFORME
     Dosage: 300 MG/5XW/PO
     Route: 048
     Dates: start: 20120312, end: 20120409
  3. DAPSONE [Suspect]
     Indication: PRODUCT USED FOR UNKNOWN INDICATION
  4. DECADRON [Suspect]
     Indication: PRODUCT USED FOR UNKNOWN INDICATION
     Dosage: PO
     Route: 048

REACTIONS (12)
  - DIZZINESS [None]
  - GASTROOESOPHAGEAL REFLUX DISEASE [None]
  - OEDEMA PERIPHERAL [None]
  - ENTEROCOCCAL INFECTION [None]
  - RECTAL HAEMORRHAGE [None]
  - PLATELET COUNT DECREASED [None]
  - ANAEMIA [None]
  - ATAXIA [None]
  - OEDEMA [None]
  - OESOPHAGEAL ULCER [None]
  - CYSTITIS [None]
  - DYSPHAGIA [None]
